FAERS Safety Report 5077033-8 (Version None)
Quarter: 2006Q3

REPORT INFORMATION
  Report Type: 
  Country: None (occurrence: None)
  Receive Date: 20060810
  Receipt Date: 20040716
  Transmission Date: 20061208
  Serious: Yes (Death, Hospitalization)
  Sender: FDA-Public Use
  Company Number: US-BRISTOL-MYERS SQUIBB COMPANY-12643250

PATIENT
  Age: 76 Year
  Sex: Male

DRUGS (4)
  1. ERBITUX [Suspect]
     Indication: COLORECTAL CANCER
     Dosage: THERAPY INITIATED 11-JUN-2004, PATIENT RECEIVED 2 DOSES. TX INTERRUPTED.
     Route: 042
     Dates: start: 20040707, end: 20040707
  2. IRINOTECAN HCL [Suspect]
     Indication: COLORECTAL CANCER METASTATIC
     Dosage: THERAPY INITIATED 11-JUN-2004, PATIENT RECEIVED 2 DOSES. DISCONTINUED
     Route: 042
     Dates: start: 20040707, end: 20040707
  3. ALDACTONE [Concomitant]
     Dates: start: 20040618
  4. LASIX [Concomitant]
     Dates: start: 20040618

REACTIONS (4)
  - DIARRHOEA [None]
  - MALIGNANT NEOPLASM PROGRESSION [None]
  - NEUTROPENIA [None]
  - THROMBOCYTOPENIA [None]
